FAERS Safety Report 7162525-8 (Version None)
Quarter: 2010Q4

REPORT INFORMATION
  Report Type: 
  Country: None (occurrence: None)
  Receive Date: 20101215
  Receipt Date: 20101208
  Transmission Date: 20110411
  Serious: Yes (Other)
  Sender: FDA-Public Use
  Company Number: US-JNJFOC-20101004408

PATIENT
  Sex: Female

DRUGS (4)
  1. NUCYNTA [Suspect]
     Indication: BACK PAIN
     Dosage: 1-2 EVERY 6 HOURS (MAXIMUM OF 8 PER DAY)
     Route: 048
  2. NUCYNTA [Suspect]
     Indication: PAIN
     Dosage: 1-2 EVERY 6 HOURS (MAXIMUM OF 8 PER DAY)
     Route: 048
  3. LYRICA [Concomitant]
     Indication: PAIN MANAGEMENT
     Route: 065
  4. FENTANYL-100 [Concomitant]
     Indication: PAIN MANAGEMENT
     Route: 062

REACTIONS (2)
  - ANGIOEDEMA [None]
  - HYPERSENSITIVITY [None]
